FAERS Safety Report 9341396 (Version 1)
Quarter: 2013Q2

REPORT INFORMATION
  Report Type: Spontaneous
  Country: US (occurrence: None)
  Receive Date: 20130610
  Receipt Date: 20130610
  Transmission Date: 20140414
  Serious: Yes (Hospitalization)
  Sender: FDA-Public Use
  Company Number: None

PATIENT
  Age: 77 Year
  Sex: Male
  Weight: 68.5 kg

DRUGS (11)
  1. ARM B-RITUXIMAB [Suspect]
  2. ADVAIR DISKUS [Concomitant]
  3. ASPIRIN [Concomitant]
  4. CARDURA [Concomitant]
  5. COZAAR [Concomitant]
  6. DYAZIDE [Concomitant]
  7. FLOMAX [Concomitant]
  8. LIPITOR [Concomitant]
  9. NASACORT [Concomitant]
  10. PROSCAR [Concomitant]
  11. SYNTHROID [Concomitant]

REACTIONS (2)
  - Pulmonary mass [None]
  - Sarcoma metastatic [None]
